FAERS Safety Report 9062837 (Version 1)
Quarter: 2013Q1

REPORT INFORMATION
  Report Type: Spontaneous
  Country: IL (occurrence: IL)
  Receive Date: 20130128
  Receipt Date: 20130128
  Transmission Date: 20140127
  Serious: Yes (Other)
  Sender: FDA-Public Use
  Company Number: IL-JNJFOC-20130111589

PATIENT
  Age: 33 Year
  Sex: Female

DRUGS (2)
  1. REMICADE [Suspect]
     Indication: COLITIS ULCERATIVE
     Route: 042
     Dates: start: 201301
  2. REMICADE [Suspect]
     Indication: COLITIS ULCERATIVE
     Dosage: SINCE YEAR AND A HALF
     Route: 042

REACTIONS (2)
  - Asphyxia [Unknown]
  - Adverse drug reaction [Unknown]
